FAERS Safety Report 6745176-6 (Version None)
Quarter: 2010Q2

REPORT INFORMATION
  Report Type: 
  Country: None (occurrence: None)
  Receive Date: 20100526
  Receipt Date: 20100511
  Transmission Date: 20101027
  Serious: Yes (Other)
  Sender: FDA-Public Use
  Company Number: US-1181913

PATIENT
  Sex: Female

DRUGS (1)
  1. BETAXOLOL HCL [Suspect]
     Dosage: (OPHTHALMIC)
     Route: 047
     Dates: start: 20100510

REACTIONS (2)
  - DYSPNOEA [None]
  - OCULAR HYPERAEMIA [None]
